FAERS Safety Report 13044721 (Version 5)
Quarter: 2017Q2

REPORT INFORMATION
  Report Type: Report from Study
  Country: DE (occurrence: DE)
  Receive Date: 20161220
  Receipt Date: 20170628
  Transmission Date: 20170830
  Serious: Yes (Hospitalization)
  Sender: FDA-Public Use
  Company Number: DE-TAKEDA-2016TUS022471

PATIENT
  Age: 49 Year
  Sex: Female

DRUGS (3)
  1. MEZAVANT [Concomitant]
     Active Substance: MESALAMINE
     Indication: COLITIS ULCERATIVE
     Dosage: 4800 MG, QD
     Route: 048
     Dates: start: 20101209, end: 20161206
  2. VEDOLIZUMAB [Suspect]
     Active Substance: VEDOLIZUMAB
     Indication: COLITIS ULCERATIVE
     Dosage: 300 MG, UNK
     Route: 042
     Dates: start: 20160210, end: 201704
  3. SALOFALK                           /00747601/ [Concomitant]
     Active Substance: MESALAMINE
     Indication: COLITIS ULCERATIVE
     Dosage: 2 G, QD
     Dates: start: 20160211, end: 20161206

REACTIONS (15)
  - Infection [Recovered/Resolved]
  - Haematochezia [Recovered/Resolved]
  - Pruritus genital [Recovered/Resolved]
  - Gastrointestinal wall thickening [Not Recovered/Not Resolved]
  - Abdominal distension [Recovered/Resolved]
  - Pollakiuria [Not Recovered/Not Resolved]
  - Faeces soft [Recovering/Resolving]
  - Cystitis [Recovered/Resolved]
  - Abdominal pain [Recovered/Resolved]
  - Vomiting [Recovered/Resolved]
  - Sleep disorder [Recovered/Resolved]
  - Staphylococcal infection [Unknown]
  - Fatigue [Not Recovered/Not Resolved]
  - Colitis ulcerative [Unknown]
  - Drug ineffective [Unknown]

NARRATIVE: CASE EVENT DATE: 2016
